FAERS Safety Report 4511786-X (Version None)
Quarter: 2004Q4

REPORT INFORMATION
  Report Type: 
  Country: None (occurrence: None)
  Receive Date: 20041123
  Receipt Date: 20041123
  Transmission Date: 20050328
  Serious: Yes (Other)
  Sender: FDA-Public Use
  Company Number: None

PATIENT
  Age: 79 Year
  Sex: Male
  Weight: 79.8 kg

DRUGS (12)
  1. GEMFRIBROZIL [Suspect]
  2. QUETIAPINE FUMARATE [Concomitant]
  3. ACETAMINOPHEN [Concomitant]
  4. ARTIFICIAL TEARS POLYVINYL ALCOHOL [Concomitant]
  5. LOVASTATIN [Concomitant]
  6. SERTRALINE HCL [Concomitant]
  7. MULTIVITAMIN/MINERALS THERAPEUT [Concomitant]
  8. HYDROXYZINE PAMOATE [Concomitant]
  9. FOSINOPRIL NA [Concomitant]
  10. ASPIRIN [Concomitant]
  11. FERROUS SO4 [Concomitant]
  12. DM 10/GUAIFENESN 100MG/5ML (ALC-F/SF) SYR [Concomitant]

REACTIONS (1)
  - ASTHENIA [None]
